FAERS Safety Report 7325905-3 (Version None)
Quarter: 2011Q1

REPORT INFORMATION
  Report Type: 
  Country: None (occurrence: None)
  Receive Date: 20110218
  Receipt Date: 20110207
  Transmission Date: 20110831
  Serious: Yes (Life-Threatening, Other)
  Sender: FDA-Public Use
  Company Number: DSA_44959_2011

PATIENT

DRUGS (4)
  1. BENDROFLUMETHIAZIDE [Concomitant]
  2. AMLODIPINE [Concomitant]
  3. BISOPROLOL [Concomitant]
  4. ENALAPRIL MALEATE [Suspect]
     Indication: ESSENTIAL HYPERTENSION
     Dosage: 20 MG TRANSPLACENTAL
     Route: 064
     Dates: end: 20110115

REACTIONS (5)
  - OLIGOHYDRAMNIOS [None]
  - CAESAREAN SECTION [None]
  - MATERNAL DRUGS AFFECTING FOETUS [None]
  - ULTRASOUND DOPPLER ABNORMAL [None]
  - FOETAL DISTRESS SYNDROME [None]
